FAERS Safety Report 9582961 (Version 2)
Quarter: 2013Q4

REPORT INFORMATION
  Report Type: Spontaneous
  Country: US (occurrence: US)
  Receive Date: 20131002
  Receipt Date: 20131002
  Transmission Date: 20140711
  Serious: No
  Sender: FDA-Public Use
  Company Number: US-AMGEN-USASP2013039577

PATIENT
  Age: 51 Year
  Sex: Female
  Weight: 131.5 kg

DRUGS (11)
  1. ENBREL [Suspect]
     Indication: PRODUCT USED FOR UNKNOWN INDICATION
     Dosage: 50 MG, 2 TIMES/WK
     Route: 058
     Dates: start: 20121024, end: 20130509
  2. LORATADINE [Concomitant]
     Dosage: 10 MG, UNK
  3. LISINOPRIL [Concomitant]
     Dosage: 2.5 MG, UNK
  4. PRAVASTATIN [Concomitant]
     Dosage: 20 MG, UNK
  5. WELLBUTRIN [Concomitant]
     Dosage: 75 MG, UNK
  6. MULTIVITAMINS, PLAIN [Concomitant]
     Dosage: UNK
  7. ALBUTEROL                          /00139501/ [Concomitant]
     Dosage: UNK
  8. PRONAX [Concomitant]
     Dosage: UNK
  9. TYLENOL                            /00020001/ [Concomitant]
     Dosage: UNK
  10. CLARITIN                           /00413701/ [Concomitant]
     Dosage: UNK
  11. PRAVACHOL [Concomitant]
     Dosage: UNK

REACTIONS (2)
  - Drug ineffective [Not Recovered/Not Resolved]
  - Psoriasis [Not Recovered/Not Resolved]
